FAERS Safety Report 11405584 (Version 1)
Quarter: 2015Q3

REPORT INFORMATION
  Report Type: Spontaneous
  Country: US (occurrence: US)
  Receive Date: 20150821
  Receipt Date: 20150821
  Transmission Date: 20151125
  Serious: No
  Sender: FDA-Public Use
  Company Number: US-PFIZER INC-2015277229

PATIENT
  Age: 80 Year
  Sex: Female
  Weight: 54 kg

DRUGS (7)
  1. PREMPRO [Suspect]
     Active Substance: ESTROGENS, CONJUGATED\MEDROXYPROGESTERONE ACETATE
     Indication: INSOMNIA
     Dosage: 0.625 MG, 1X/DAY, WITH EVENING MEAL
     Route: 048
     Dates: start: 1974
  2. AMLODIPINE [Concomitant]
     Active Substance: AMLODIPINE BESYLATE
     Dosage: 10 MG
  3. BABY ASPIRIN [Concomitant]
     Active Substance: ASPIRIN
     Dosage: 1X/DAY, EVERY NIGHT TOGETHER WITH PREMPRO
  4. ESSENTIAL VITAMIN SUPPLEMENT [Concomitant]
  5. VITAMIN B [Concomitant]
     Active Substance: VITAMIN B
  6. VITAMIN E [Concomitant]
     Active Substance: .ALPHA.-TOCOPHEROL
  7. VITAMIN D [Concomitant]
     Active Substance: CHOLECALCIFEROL

REACTIONS (3)
  - Off label use [Not Recovered/Not Resolved]
  - Therapeutic response unexpected [Not Recovered/Not Resolved]
  - General physical condition normal [Not Recovered/Not Resolved]
